FAERS Safety Report 5727420-7 (Version None)
Quarter: 2008Q2

REPORT INFORMATION
  Report Type: 
  Country: None (occurrence: None)
  Receive Date: 20080505
  Receipt Date: 20080425
  Transmission Date: 20081010
  Serious: Yes (Other)
  Sender: FDA-Public Use
  Company Number: US-AVENTIS-200812691US

PATIENT
  Age: 42 Year
  Sex: Female

DRUGS (2)
  1. ENOXAPARIN SODIUM [Suspect]
     Dosage: DOSE: UNK
     Route: 058
  2. UNFRACTIONATED HEPARIN [Concomitant]
     Dosage: DOSE: UNK USED FOR 3 DAYS PRIOR TO SWITCH TO ENOXAPARIN
     Route: 042

REACTIONS (5)
  - ANGIOEDEMA [None]
  - DYSPHONIA [None]
  - THROAT TIGHTNESS [None]
  - URTICARIA [None]
  - WHEEZING [None]
